FAERS Safety Report 8390779-9 (Version None)
Quarter: 2012Q2

REPORT INFORMATION
  Report Type: 
  Country: None (occurrence: None)
  Receive Date: 20120529
  Receipt Date: 20120525
  Transmission Date: 20120825
  Serious: Yes (Other)
  Sender: FDA-Public Use
  Company Number: JP-PFIZER INC-2012115003

PATIENT

DRUGS (1)
  1. LYRICA [Suspect]
     Dosage: 150 MG A DAY
     Route: 048
     Dates: end: 20120509

REACTIONS (1)
  - PLEURAL EFFUSION [None]
